FAERS Safety Report 8724261 (Version 2)
Quarter: 2012Q4

REPORT INFORMATION
  Report Type: 
  Country: BR (occurrence: BR)
  Receive Date: 20120815
  Receipt Date: 20121203
  Transmission Date: 20130627
  Serious: Yes (Other)
  Sender: FDA-Public Use
  Company Number: BR-ASTRAZENECA-2012SE56080

PATIENT
  Age: 73 Year
  Sex: Female
  Weight: 79 kg

DRUGS (4)
  1. CRESTOR [Suspect]
     Indication: HYPERCHOLESTEROLAEMIA
     Route: 048
     Dates: end: 201208
  2. CRESTOR [Suspect]
     Indication: HYPERCHOLESTEROLAEMIA
     Route: 048
  3. FENOFIBRATE [Concomitant]
     Route: 048
  4. VITAMIN E [Concomitant]
     Route: 048

REACTIONS (2)
  - Hepatic cirrhosis [Unknown]
  - Glucose tolerance impaired [Recovering/Resolving]
